FAERS Safety Report 25036251 (Version 2)
Quarter: 2025Q2

REPORT INFORMATION
  Report Type: Spontaneous
  Country: US (occurrence: US)
  Receive Date: 20250304
  Receipt Date: 20250408
  Transmission Date: 20250716
  Serious: Yes (Hospitalization)
  Sender: PFIZER
  Company Number: US-MLMSERVICE-20250225-PI425295-00132-2

PATIENT
  Age: 57 Year
  Sex: Male

DRUGS (10)
  1. EPINEPHRINE [Suspect]
     Active Substance: EPINEPHRINE
     Indication: Resuscitation
  2. OXYGEN [Concomitant]
     Active Substance: OXYGEN
  3. PHENYLEPHRINE [Concomitant]
     Active Substance: PHENYLEPHRINE
     Indication: Resuscitation
  4. EPHEDRINE [Concomitant]
     Active Substance: EPHEDRINE
     Indication: Resuscitation
  5. CALCIUM CHLORIDE [Concomitant]
     Active Substance: CALCIUM CHLORIDE
     Indication: Resuscitation
  6. PROPOFOL [Concomitant]
     Active Substance: PROPOFOL
     Indication: General anaesthesia
  7. MIDAZOLAM [Concomitant]
     Active Substance: MIDAZOLAM
     Indication: General anaesthesia
  8. FENTANYL [Concomitant]
     Active Substance: FENTANYL
     Indication: General anaesthesia
  9. ROCURONIUM [Concomitant]
     Active Substance: ROCURONIUM BROMIDE
     Indication: General anaesthesia
  10. CHLORHEXIDINE [Concomitant]
     Active Substance: CHLORHEXIDINE
     Indication: Infection prophylaxis

REACTIONS (1)
  - Systolic anterior motion of mitral valve [Unknown]
